FAERS Safety Report 8885248 (Version 9)
Quarter: 2013Q3

REPORT INFORMATION
  Report Type: Spontaneous
  Country: US (occurrence: US)
  Receive Date: 20121102
  Receipt Date: 20130816
  Transmission Date: 20140515
  Serious: Yes (Other)
  Sender: FDA-Public Use
  Company Number: US-009507513-1210USA008848

PATIENT
  Age: 63 Year
  Sex: Male
  Weight: 78.55 kg

DRUGS (11)
  1. VICTRELIS [Suspect]
     Indication: CHRONIC HEPATITIS C
     Dosage: 200 MG, TID
     Route: 048
     Dates: start: 20120921
  2. RIBAVIRIN [Suspect]
     Indication: CHRONIC HEPATITIS C
     Dosage: 1000MG DIVIDED DOSE (3DF IN MORNING AND 2 AT NIGHT (200MG, 2 IN 1 D)), QD
     Route: 048
     Dates: start: 20120824
  3. RIBAVIRIN [Suspect]
     Dosage: 600 MG, QD
     Route: 048
  4. PEGASYS [Suspect]
     Indication: HEPATITIS C
     Dosage: 180 MICROGRAM, QW
     Route: 058
     Dates: start: 20120824
  5. PEGASYS [Suspect]
     Dosage: 135 MICROGRAM, QW
     Route: 058
     Dates: start: 20130107
  6. PEGASYS [Suspect]
     Dosage: 90 MICROGRAM, UNK
  7. SULFAMETHOXAZOLE [Concomitant]
     Indication: INFECTION
     Dosage: 2 IN 1 DAY, BID
     Route: 048
     Dates: start: 20121207
  8. LISINOPRIL [Concomitant]
     Indication: HYPERTENSION
     Dosage: 20 MG, QD
     Route: 048
  9. HYDROCHLORTHIAZID [Concomitant]
     Indication: HYPERTENSION
     Dosage: 25 MG, QD
     Route: 048
  10. CEPHALEXIN [Concomitant]
     Dosage: 500 MG, UNK
  11. ASPIRIN [Concomitant]
     Indication: PROPHYLAXIS
     Dosage: 81 MG, QD
     Route: 048

REACTIONS (16)
  - Neutropenia [Unknown]
  - Rash pruritic [Unknown]
  - Blood triglycerides increased [Unknown]
  - White blood cell count decreased [Unknown]
  - Influenza like illness [Unknown]
  - Paraesthesia [Not Recovered/Not Resolved]
  - Dyspnoea [Not Recovered/Not Resolved]
  - Hypoaesthesia [Not Recovered/Not Resolved]
  - Abdominal discomfort [Unknown]
  - Red blood cell count decreased [Unknown]
  - Dysgeusia [Unknown]
  - Rash papular [Unknown]
  - Fatigue [Unknown]
  - Dizziness [Not Recovered/Not Resolved]
  - Dysgeusia [Unknown]
  - Drug ineffective [Unknown]
